FAERS Safety Report 20751271 (Version 1)
Quarter: 2022Q2

REPORT INFORMATION
  Report Type: Spontaneous
  Country: TN (occurrence: TN)
  Receive Date: 20220426
  Receipt Date: 20220426
  Transmission Date: 20220721
  Serious: Yes (Other)
  Sender: FDA-Public Use
  Company Number: TN-CMP PHARMA-2022CMP00008

PATIENT

DRUGS (6)
  1. TRIAMCINOLONE [Suspect]
     Active Substance: TRIAMCINOLONE
     Dosage: 4 MG, ONCE
  2. POVIDONE-IODINE [Concomitant]
     Active Substance: POVIDONE-IODINE
     Route: 061
  3. BENOXINATE [Concomitant]
     Active Substance: BENOXINATE
     Indication: Anaesthetic ophthalmic procedure
     Route: 065
  4. LOCAL ANTIBIOTIC THERAPY [Concomitant]
     Route: 065
  5. LOCAL CORTICOSTEROID TREATMENT [Concomitant]
     Route: 065
  6. LOCAL CYCLOPLEGIC THERAPY [Concomitant]
     Route: 065

REACTIONS (1)
  - Non-infectious endophthalmitis [Recovered/Resolved]
